FAERS Safety Report 13436819 (Version 1)
Quarter: 2017Q2

REPORT INFORMATION
  Report Type: Spontaneous
  Country: US (occurrence: US)
  Receive Date: 20170413
  Receipt Date: 20170413
  Transmission Date: 20170830
  Serious: Yes (Hospitalization)
  Sender: FDA-Public Use
  Company Number: US-VIFOR (INTERNATIONAL) INC.-VIT-2017-03939

PATIENT
  Sex: Female

DRUGS (20)
  1. BISACODYL. [Concomitant]
     Active Substance: BISACODYL
  2. VITRON-C [Concomitant]
  3. XALATAN [Concomitant]
     Active Substance: LATANOPROST
  4. VELTASSA [Suspect]
     Active Substance: PATIROMER
     Indication: HYPERKALAEMIA
     Route: 048
     Dates: start: 20160913
  5. LEVOTHYROXINE SODIUM. [Concomitant]
     Active Substance: LEVOTHYROXINE SODIUM
  6. MAGNESIUM [Concomitant]
     Active Substance: MAGNESIUM
  7. RANITIDINE HYDROCHLORIDE. [Concomitant]
     Active Substance: RANITIDINE HYDROCHLORIDE
  8. FOLIC ACID. [Concomitant]
     Active Substance: FOLIC ACID
  9. PARACETAMOL [Concomitant]
     Active Substance: ACETAMINOPHEN
  10. LINZESS [Concomitant]
     Active Substance: LINACLOTIDE
  11. ACTONEL [Concomitant]
     Active Substance: RISEDRONATE SODIUM
  12. ARANESP [Concomitant]
     Active Substance: DARBEPOETIN ALFA
  13. HYDRALAZINE HYDROCHLORIDE. [Concomitant]
     Active Substance: HYDRALAZINE HYDROCHLORIDE
  14. NOVOLOG MIX 70/30 [Concomitant]
     Active Substance: INSULIN ASPART
  15. PRAVASTATIN SODIUM. [Concomitant]
     Active Substance: PRAVASTATIN SODIUM
  16. COLECALCIFEROL [Concomitant]
     Active Substance: CHOLECALCIFEROL
  17. METOCLOPRAMIDE HYDROCHLORIDE. [Concomitant]
     Active Substance: METOCLOPRAMIDE HYDROCHLORIDE
  18. GLIPIZIDE. [Concomitant]
     Active Substance: GLIPIZIDE
  19. METOPROLOL TARTRATE. [Concomitant]
     Active Substance: METOPROLOL TARTRATE
  20. SPS [Concomitant]
     Active Substance: SODIUM POLYSTYRENE SULFONATE

REACTIONS (1)
  - Hospitalisation [Unknown]
